FAERS Safety Report 5719188-5 (Version None)
Quarter: 2008Q2

REPORT INFORMATION
  Report Type: 
  Country: None (occurrence: None)
  Receive Date: 20080428
  Receipt Date: 20080415
  Transmission Date: 20081010
  Serious: Yes (Hospitalization)
  Sender: FDA-Public Use
  Company Number: US-JNJFOC-20080404232

PATIENT
  Sex: Female
  Weight: 56.82 kg

DRUGS (12)
  1. TYLENOL [Suspect]
  2. TYLENOL [Suspect]
     Indication: DRUG USE FOR UNKNOWN INDICATION
  3. KETEK [Suspect]
     Indication: SINUSITIS
  4. ALCOHOL [Suspect]
     Indication: DRUG USE FOR UNKNOWN INDICATION
  5. HISTUSSIN HC [Concomitant]
  6. PHENERGAN [Concomitant]
  7. SOMA [Concomitant]
  8. ZYRTEC-D 12 HOUR [Concomitant]
  9. IBUPROFEN [Concomitant]
  10. ASPIRIN [Concomitant]
  11. NAPROXEN [Concomitant]
  12. NEXIUM [Concomitant]

REACTIONS (3)
  - HEPATIC FAILURE [None]
  - HEPATITIS [None]
  - HEPATOTOXICITY [None]
